FAERS Safety Report 9158973 (Version 1)
Quarter: 2013Q1

REPORT INFORMATION
  Report Type: Spontaneous
  Country: US (occurrence: None)
  Receive Date: 20130211
  Receipt Date: 20130211
  Transmission Date: 20140127
  Serious: Yes (Disabling, Other)
  Sender: FDA-Public Use
  Company Number: ACO_34052_2013

PATIENT
  Age: 51 Year
  Sex: Female
  Weight: 104.3 kg

DRUGS (5)
  1. ZANAFLEX [Suspect]
     Indication: SPINAL CORD COMPRESSION
     Dates: start: 201204
  2. LYRICA (PREGABALIN) [Suspect]
     Indication: PAIN MANAGEMENT
  3. BENICAR HCT (HYDROCHLOROTHIAZIDE, OLMESARTAN MEDOXOMIL) [Concomitant]
  4. LIDOCAINE (LIDOCAINE HYDROCHLORIDE) PATCH [Concomitant]
  5. NORFLEX (ORPHENADRINE CITRATE) [Concomitant]

REACTIONS (7)
  - Decreased activity [None]
  - Bradyphrenia [None]
  - Movement disorder [None]
  - Hypersomnia [None]
  - Road traffic accident [None]
  - Drug effect increased [None]
  - Confusional state [None]
